FAERS Safety Report 15592463 (Version 1)
Quarter: 2018Q4

REPORT INFORMATION
  Report Type: Spontaneous
  Country: DE (occurrence: DE)
  Receive Date: 20181106
  Receipt Date: 20181106
  Transmission Date: 20190205
  Serious: Yes (Hospitalization, Other)
  Sender: FDA-Public Use
  Company Number: DE-PFIZER INC-2018448351

PATIENT
  Sex: Male

DRUGS (3)
  1. TECENTRIQ [Suspect]
     Active Substance: ATEZOLIZUMAB
     Indication: NON-SMALL CELL LUNG CANCER
     Dosage: 1200 MG, UNK
     Route: 065
     Dates: start: 20180918
  2. PACLITAXEL. [Suspect]
     Active Substance: PACLITAXEL
     Indication: NON-SMALL CELL LUNG CANCER
     Route: 065
  3. CARBOPLATIN. [Suspect]
     Active Substance: CARBOPLATIN
     Indication: NON-SMALL CELL LUNG CANCER
     Route: 065

REACTIONS (7)
  - Gait disturbance [Unknown]
  - Anti-cyclic citrullinated peptide antibody positive [Unknown]
  - Polyneuropathy [Not Recovered/Not Resolved]
  - Device related sepsis [Unknown]
  - Arthralgia [Recovered/Resolved]
  - Rheumatoid factor increased [Unknown]
  - Peroneal nerve palsy [Unknown]
